FAERS Safety Report 16650282 (Version 4)
Quarter: 2019Q4

REPORT INFORMATION
  Report Type: Report from Study
  Country: None (occurrence: US)
  Receive Date: 20190731
  Receipt Date: 20191119
  Transmission Date: 20200122
  Serious: Yes (Hospitalization, Other)
  Sender: FDA-Public Use
  Company Number: US-ABBVIE-19K-163-2830126-00

PATIENT
  Age: 76 Year
  Sex: Male
  Weight: 90.8 kg

DRUGS (2)
  1. HUMIRA [Suspect]
     Active Substance: ADALIMUMAB
     Route: 058
  2. HUMIRA [Suspect]
     Active Substance: ADALIMUMAB
     Indication: CROHN^S DISEASE
     Route: 058
     Dates: start: 201804

REACTIONS (16)
  - Sinonasal obstruction [Recovered/Resolved]
  - Large intestine polyp [Unknown]
  - Sinonasal obstruction [Unknown]
  - Drug ineffective [Unknown]
  - Procedural pain [Recovering/Resolving]
  - Exposure to fungus [Unknown]
  - Rib fracture [Unknown]
  - Psoriasis [Recovering/Resolving]
  - Sinusitis [Recovered/Resolved]
  - Photosensitivity reaction [Recovered/Resolved]
  - Bone contusion [Recovered/Resolved]
  - Sinusitis fungal [Recovered/Resolved]
  - Seasonal allergy [Recovered/Resolved]
  - Dizziness [Recovered/Resolved]
  - Fall [Recovered/Resolved]
  - Vision blurred [Recovered/Resolved]

NARRATIVE: CASE EVENT DATE: 2019
